FAERS Safety Report 15429073 (Version 1)
Quarter: 2018Q3

REPORT INFORMATION
  Report Type: Spontaneous
  Country: US (occurrence: US)
  Receive Date: 20180926
  Receipt Date: 20180926
  Transmission Date: 20181010
  Serious: No
  Sender: FDA-Public Use
  Company Number: US-PFIZER INC-2018387073

PATIENT

DRUGS (1)
  1. EUCRISA [Suspect]
     Active Substance: CRISABOROLE
     Indication: ROSACEA
     Dosage: UNK

REACTIONS (3)
  - Rosacea [Unknown]
  - Product use in unapproved indication [Unknown]
  - Condition aggravated [Unknown]
